FAERS Safety Report 10083239 (Version 1)
Quarter: 2014Q2

REPORT INFORMATION
  Report Type: Spontaneous
  Country: US (occurrence: None)
  Receive Date: 20140415
  Receipt Date: 20140415
  Transmission Date: 20141212
  Serious: Yes (Hospitalization)
  Sender: FDA-Public Use
  Company Number: 2286267

PATIENT
  Age: 66 Year
  Sex: Female

DRUGS (2)
  1. MORPHINE SULPHATE [Suspect]
     Indication: SPINAL ANAESTHESIA
     Route: 037
  2. BUPIVACAINE [Concomitant]

REACTIONS (2)
  - Hypersensitivity [None]
  - Respiratory depression [None]
